FAERS Safety Report 23688946 (Version 2)
Quarter: 2024Q2

REPORT INFORMATION
  Report Type: Spontaneous
  Country: JP (occurrence: JP)
  Receive Date: 20240329
  Receipt Date: 20240406
  Transmission Date: 20240716
  Serious: Yes (Hospitalization)
  Sender: FDA-Public Use
  Company Number: JP-ABBVIE-5698332

PATIENT
  Age: 70 Year
  Sex: Male

DRUGS (2)
  1. SKYRIZI [Suspect]
     Active Substance: RISANKIZUMAB-RZAA
     Indication: Psoriasis
     Dosage: FORM STRENGTH: 150 MILLIGRAM
     Route: 058
     Dates: start: 20220601, end: 202404
  2. SKYRIZI [Suspect]
     Active Substance: RISANKIZUMAB-RZAA
     Dosage: FORM STRENGTH: 150 MILLIGRAM?FIRST ADMIN DATE: 2024
     Route: 058

REACTIONS (2)
  - Ocular myasthenia [Recovering/Resolving]
  - Eyelid disorder [Unknown]

NARRATIVE: CASE EVENT DATE: 20231201
